FAERS Safety Report 11811926 (Version 1)
Quarter: 2015Q4

REPORT INFORMATION
  Report Type: Report from Study
  Country: BR (occurrence: BR)
  Receive Date: 20151208
  Receipt Date: 20151208
  Transmission Date: 20160305
  Serious: Yes (Other)
  Sender: FDA-Public Use
  Company Number: PHHY2015BR159716

PATIENT
  Sex: Male
  Weight: 76 kg

DRUGS (1)
  1. EXELON PATCH [Suspect]
     Active Substance: RIVASTIGMINE
     Indication: DEMENTIA ALZHEIMER^S TYPE
     Dosage: 1 PATCH, QD
     Route: 062
     Dates: start: 201511

REACTIONS (3)
  - Cerebral thrombosis [Unknown]
  - Movement disorder [Unknown]
  - Wrong technique in product usage process [Unknown]
